FAERS Safety Report 24692955 (Version 2)
Quarter: 2025Q3

REPORT INFORMATION
  Report Type: Spontaneous
  Country: EU (occurrence: EU)
  Receive Date: 20241203
  Receipt Date: 20250809
  Transmission Date: 20251021
  Serious: Yes (Other)
  Sender: ALEXION PHARMACEUTICALS
  Company Number: EU-ASTRAZENECA-202411EEA025796HU

PATIENT
  Age: 17 Year
  Sex: Female

DRUGS (2)
  1. SOLIRIS [Suspect]
     Active Substance: ECULIZUMAB
     Indication: Atypical haemolytic uraemic syndrome
     Dosage: 900 MILLIGRAM, QW
     Route: 065
     Dates: start: 20240920
  2. SOLIRIS [Suspect]
     Active Substance: ECULIZUMAB
     Route: 065

REACTIONS (10)
  - Pyelocaliectasis [Unknown]
  - Ascites [Unknown]
  - Nephrolithiasis [Unknown]
  - Posterior reversible encephalopathy syndrome [Unknown]
  - Vomiting [Unknown]
  - Hypertension [Recovering/Resolving]
  - Clostridium test positive [Unknown]
  - Oliguria [Unknown]
  - Hypernatraemia [Unknown]
  - Complement factor C3 decreased [Recovering/Resolving]

NARRATIVE: CASE EVENT DATE: 20241019
